FAERS Safety Report 6045290-7 (Version None)
Quarter: 2009Q1

REPORT INFORMATION
  Report Type: 
  Country: None (occurrence: None)
  Receive Date: 20090121
  Receipt Date: 20090113
  Transmission Date: 20090719
  Serious: No
  Sender: FDA-Public Use
  Company Number: US-BAYER-200827550NA

PATIENT
  Age: 23 Year
  Sex: Female
  Weight: 108 kg

DRUGS (1)
  1. MIRENA [Suspect]
     Indication: DRUG USE FOR UNKNOWN INDICATION
     Route: 015
     Dates: start: 20060101, end: 20080710

REACTIONS (1)
  - PREGNANCY WITH CONTRACEPTIVE DEVICE [None]
